FAERS Safety Report 4894520-3 (Version None)
Quarter: 2006Q1

REPORT INFORMATION
  Report Type: 
  Country: None (occurrence: None)
  Receive Date: 20060127
  Receipt Date: 20051230
  Transmission Date: 20060701
  Serious: Yes (Hospitalization, Other)
  Sender: FDA-Public Use
  Company Number: FR-ABBOTT-06P-056-0321002-00

PATIENT
  Age: 40 Year
  Sex: Female

DRUGS (9)
  1. DEPAKOTE [Suspect]
     Indication: DEPRESSION
     Route: 048
     Dates: start: 20051012, end: 20051124
  2. DEPAKOTE [Suspect]
     Route: 048
     Dates: end: 20051011
  3. DEPAKOTE [Suspect]
     Route: 048
     Dates: start: 20050908
  4. HYDROXYZINE HYDROCHLORIDE [Concomitant]
     Indication: SEDATIVE THERAPY
     Route: 048
  5. FERROUS SULFATE TAB [Concomitant]
     Indication: DRUG USE FOR UNKNOWN INDICATION
     Route: 048
  6. PAROXETINE HYDROCHLORIDE [Concomitant]
     Indication: DEPRESSION
     Route: 048
  7. LEVOCETIRIZINE [Concomitant]
     Indication: DRUG USE FOR UNKNOWN INDICATION
     Route: 048
  8. OXAZEPAM [Concomitant]
     Indication: DRUG USE FOR UNKNOWN INDICATION
     Route: 048
  9. NICOTINE [Concomitant]
     Indication: DRUG USE FOR UNKNOWN INDICATION
     Route: 062

REACTIONS (6)
  - CEREBELLAR SYNDROME [None]
  - CONFUSIONAL STATE [None]
  - CONVULSION [None]
  - ELECTROENCEPHALOGRAM ABNORMAL [None]
  - ENCEPHALOPATHY [None]
  - MYOCLONUS [None]
